FAERS Safety Report 9216662 (Version 1)
Quarter: 2013Q1

REPORT INFORMATION
  Report Type: Spontaneous
  Country: US (occurrence: None)
  Receive Date: 20130129
  Receipt Date: 20130129
  Transmission Date: 20140127
  Serious: No
  Sender: FDA-Public Use
  Company Number: 2013P1000722

PATIENT
  Age: 74 Year
  Sex: Female
  Weight: 49.9 kg

DRUGS (11)
  1. ISOSORBIDE MONONITRATE [Suspect]
     Indication: ARTERIOSPASM CORONARY
     Route: 048
     Dates: start: 2010, end: 201212
  2. ISOSORBIDE MONONITRATE [Suspect]
     Indication: CARDIAC DISORDER
     Route: 048
     Dates: start: 2010, end: 201212
  3. ISOSORBIDE MONONITRATE [Suspect]
     Route: 048
  4. ISOSORBIDE MONONITRATE [Suspect]
     Dates: start: 201212, end: 201212
  5. SYNTHROID [Concomitant]
  6. JANUVIA [Concomitant]
  7. DEXILANT [Concomitant]
  8. PROBIOTIC [Concomitant]
  9. PREDNISONE [Concomitant]
  10. XYZAL [Concomitant]
  11. XIFAXAN [Concomitant]

REACTIONS (10)
  - Dizziness [None]
  - Disorientation [None]
  - Feeling abnormal [None]
  - Dehydration [None]
  - Urticaria [None]
  - Coeliac disease [None]
  - Wheezing [None]
  - Weight decreased [None]
  - Drug effect decreased [None]
  - Gastroenteritis norovirus [None]
